FAERS Safety Report 16320230 (Version 2)
Quarter: 2019Q2

REPORT INFORMATION
  Report Type: Spontaneous
  Country: US (occurrence: US)
  Receive Date: 20190516
  Receipt Date: 20190614
  Transmission Date: 20190711
  Serious: No
  Sender: FDA-Public Use
  Company Number: US-JNJFOC-20190444574

PATIENT
  Age: 48 Year
  Sex: Male
  Weight: 104.33 kg

DRUGS (4)
  1. DURAGESIC [Suspect]
     Active Substance: FENTANYL
     Indication: BACK PAIN
     Route: 062
     Dates: start: 2006, end: 2007
  2. DURAGESIC [Suspect]
     Active Substance: FENTANYL
     Indication: BACK PAIN
     Route: 062
     Dates: start: 2007
  3. DURAGESIC [Suspect]
     Active Substance: FENTANYL
     Indication: BACK PAIN
     Route: 062
     Dates: start: 2004, end: 2006
  4. DURAGESIC [Suspect]
     Active Substance: FENTANYL
     Indication: BACK PAIN
     Route: 062
     Dates: start: 2007

REACTIONS (10)
  - Wrong technique in product usage process [Unknown]
  - Therapeutic product effect decreased [Unknown]
  - Anger [Not Recovered/Not Resolved]
  - Piloerection [Not Recovered/Not Resolved]
  - Chills [Not Recovered/Not Resolved]
  - Lacrimation increased [Not Recovered/Not Resolved]
  - Rhinorrhoea [Not Recovered/Not Resolved]
  - Pain [Not Recovered/Not Resolved]
  - Yawning [Not Recovered/Not Resolved]
  - Withdrawal syndrome [Not Recovered/Not Resolved]

NARRATIVE: CASE EVENT DATE: 20190420
